FAERS Safety Report 8036961 (Version 2)
Quarter: 2012Q4

REPORT INFORMATION
  Report Type: 
  Country: US (occurrence: US)
  Receive Date: 20110715
  Receipt Date: 20121130
  Transmission Date: 20130627
  Serious: Yes (Hospitalization)
  Sender: FDA-Public Use
  Company Number: US-JNJFOC-20110703436

PATIENT
  Age: 51 Year
  Sex: Female

DRUGS (7)
  1. ACETAMINOPHEN [Suspect]
     Route: 048
  2. ACETAMINOPHEN [Suspect]
     Indication: PRODUCT USED FOR UNKNOWN INDICATION
     Dosage: 50 tablets; unknown strength
     Route: 048
     Dates: start: 20061031
  3. UNISOM SLEEPGELS NIGHTTIME SLEEP-AID [Suspect]
     Indication: PRODUCT USED FOR UNKNOWN INDICATION
     Dosage: 32 capsules (unknown strength)
     Route: 048
     Dates: start: 20061031
  4. NEURONTIN [Concomitant]
     Indication: NEUROPATHY PERIPHERAL
     Route: 065
     Dates: end: 20061031
  5. SINEMET [Concomitant]
     Indication: RESTLESS LEGS SYNDROME
     Dosage: 250/25 mg
     Route: 048
     Dates: end: 20061030
  6. IMODIUM [Concomitant]
     Indication: DIARRHOEA
     Route: 065
     Dates: end: 20061030
  7. TYLENOL [Concomitant]
     Indication: HEADACHE
     Route: 065
     Dates: end: 20061030

REACTIONS (2)
  - Liver injury [Not Recovered/Not Resolved]
  - Intentional overdose [Unknown]
